FAERS Safety Report 21006913 (Version 3)
Quarter: 2022Q3

REPORT INFORMATION
  Report Type: Spontaneous
  Country: US (occurrence: US)
  Receive Date: 20220625
  Receipt Date: 20220810
  Transmission Date: 20221027
  Serious: Yes (Hospitalization, Other)
  Sender: FDA-Public Use
  Company Number: US-NOVARTISPH-NVSC2022US144066

PATIENT
  Age: 41 Year
  Sex: Female
  Weight: 120 kg

DRUGS (26)
  1. KESIMPTA [Suspect]
     Active Substance: OFATUMUMAB
     Indication: Relapsing multiple sclerosis
     Dosage: 20 ML, QMO
     Route: 065
  2. KESIMPTA [Suspect]
     Active Substance: OFATUMUMAB
     Indication: Relapsing-remitting multiple sclerosis
     Dosage: 20 MG (INJECT 1 PEN UNDER THE SKIN AT WEEK 0, 1, 2 AND THEN 1 PEN MONTHLY THEREFORE BEGINNING ON WEE
     Route: 058
  3. KESIMPTA [Suspect]
     Active Substance: OFATUMUMAB
     Indication: Secondary progressive multiple sclerosis
  4. CLOBETASOL [Suspect]
     Active Substance: CLOBETASOL
     Indication: Product used for unknown indication
     Dosage: 1 DOSAGE FORM, BID (1 APPL, TOP, PRN, FOR NO LONGER THAN 2 WEEKS AT A TIME, 3 REFILLS)
     Route: 061
  5. CANNABIS SATIVA SUBSP. INDICA TOP [Suspect]
     Active Substance: CANNABIS SATIVA SUBSP. INDICA TOP
     Indication: Product used for unknown indication
     Dosage: UNK (1-2 TIMES PER MONTH)
     Route: 065
     Dates: start: 20220630
  6. ROPINIROLE [Concomitant]
     Active Substance: ROPINIROLE
     Indication: Product used for unknown indication
     Dosage: 3 MG, BID (TWICE DAILY AND NIGHTLY)
     Route: 065
  7. TEMAZEPAM [Concomitant]
     Active Substance: TEMAZEPAM
     Indication: Sleep disorder
     Dosage: 1 DOSAGE FORM, QN
     Route: 048
  8. VITAMIN B12 [Concomitant]
     Active Substance: CYANOCOBALAMIN
     Indication: Vitamin B12 deficiency
     Dosage: 1000 UG, QD
     Route: 048
  9. REXULTI [Concomitant]
     Active Substance: BREXPIPRAZOLE
     Indication: Product used for unknown indication
     Dosage: 0.5 DOSAGE FORM, QD (TAKE 1/2 TABLET BY MOUTH ONCE DAILY FOR 4 DAYS THEN 1 TABLET ONCE DAILY)
     Route: 048
  10. VITAMIN D3 [Concomitant]
     Active Substance: CHOLECALCIFEROL
     Indication: Product used for unknown indication
     Dosage: 1 DOSAGE FORM, QD (125 MCG (5000 UNIT), 3 REFILLS)
     Route: 048
  11. PRISTIQ EXTENDED-RELEASE [Concomitant]
     Active Substance: DESVENLAFAXINE SUCCINATE
     Indication: Product used for unknown indication
     Dosage: 1 DOSAGE FORM, QD (EXTENDED RELAEASE, 100 MG)
     Route: 048
  12. PRISTIQ EXTENDED-RELEASE [Concomitant]
     Active Substance: DESVENLAFAXINE SUCCINATE
     Dosage: 1 DOSAGE FORM, QD (EXTENDED RELAEASE, 50 MG)
     Route: 048
  13. FAMOTIDINE [Concomitant]
     Active Substance: FAMOTIDINE
     Indication: Product used for unknown indication
     Dosage: UNK, BID
     Route: 065
  14. MIRABEGRON [Concomitant]
     Active Substance: MIRABEGRON
     Indication: Product used for unknown indication
     Dosage: UNK, QD
     Route: 065
  15. MODAFINIL [Concomitant]
     Active Substance: MODAFINIL
     Indication: Product used for unknown indication
     Dosage: 1.5 DOSAGE FORM, QD (1 AND 1/2 TABLET BY MOUTH EVERY MORNING, 2 REFILLS)
     Route: 048
  16. SUCRALFATE [Concomitant]
     Active Substance: SUCRALFATE
     Indication: Product used for unknown indication
     Dosage: 1 DOSAGE FORM, QN  (BEFORE MEALS AND HS AT NIGHT)
     Route: 048
  17. LIDODERM [Concomitant]
     Active Substance: LIDOCAINE
     Indication: Product used for unknown indication
     Dosage: 1 DOSAGE FORM, QD (1 PATCH, REMOVE PATCHES AFTER 12 HOURS, 1 REFILL)
     Route: 061
  18. MYRBETRIQ [Concomitant]
     Active Substance: MIRABEGRON
     Indication: Product used for unknown indication
     Dosage: 1 DOSAGE FORM, QD (EXTENDED RELEASE, DO NOT CRUSH OR CHEW, 11 FILLS)
     Route: 048
  19. NICOTINE [Concomitant]
     Active Substance: NICOTINE
     Indication: Product used for unknown indication
     Dosage: 1 DOSAGE FORM, QD (7MG/24 HR TRANSDERMAL FILM, EXTENDED RELEASE)
     Route: 061
  20. NYAMYC [Concomitant]
     Active Substance: NYSTATIN
     Indication: Product used for unknown indication
     Dosage: 100000 UNITS/G TOPICAL POWDER, TID (APPLY SPARINGLY TO AFFECTED AREAS)
     Route: 061
  21. PEPCID [Concomitant]
     Active Substance: FAMOTIDINE
     Indication: Product used for unknown indication
     Dosage: 1 DOSAGE FORM, BID, 5 REFILLS
     Route: 048
  22. REQUIP [Concomitant]
     Active Substance: ROPINIROLE HYDROCHLORIDE
     Indication: Product used for unknown indication
     Dosage: 1 DOSAGE FORM, BID, 3 REFILLS
     Route: 048
  23. SCOPOLAMINE [Concomitant]
     Active Substance: SCOPOLAMINE
     Indication: Product used for unknown indication
     Dosage: 1 DOSAGE FORM, Q72H (EXTENDED RELEASE, TRANSDERMAL FILM, PRN, 2 REFILLS)
     Route: 061
  24. TIZANIDINE [Concomitant]
     Active Substance: TIZANIDINE
     Indication: Product used for unknown indication
     Dosage: 1 DOSAGE FORM, Q8H (3 REFILLS)
     Route: 048
  25. XANAX [Concomitant]
     Active Substance: ALPRAZOLAM
     Indication: Product used for unknown indication
     Dosage: 1 DOSAGE FORM, TID, PRN
     Route: 048
  26. ZANAFLEX [Concomitant]
     Active Substance: TIZANIDINE HYDROCHLORIDE
     Indication: Product used for unknown indication
     Dosage: 2 DOSAGE FORM, Q8H, PRN, 1 REFILLS
     Route: 048

REACTIONS (16)
  - Cerebrovascular accident [Recovered/Resolved with Sequelae]
  - Hemiparesis [Not Recovered/Not Resolved]
  - Facial paralysis [Not Recovered/Not Resolved]
  - Nystagmus [Unknown]
  - Diplopia [Recovered/Resolved]
  - Vision blurred [Not Recovered/Not Resolved]
  - Dysarthria [Not Recovered/Not Resolved]
  - Peripheral artery thrombosis [Recovered/Resolved]
  - Substance abuse [Not Recovered/Not Resolved]
  - Hypertension [Unknown]
  - Procedural pain [Unknown]
  - Hypoaesthesia [Unknown]
  - Speech disorder [Not Recovered/Not Resolved]
  - Fatigue [Unknown]
  - Sensory loss [Unknown]
  - Headache [Unknown]

NARRATIVE: CASE EVENT DATE: 20220618
